FAERS Safety Report 13333444 (Version 3)
Quarter: 2017Q4

REPORT INFORMATION
  Report Type: Spontaneous
  Country: BR (occurrence: BR)
  Receive Date: 20170314
  Receipt Date: 20171220
  Transmission Date: 20180320
  Serious: Yes (Hospitalization, Other)
  Sender: FDA-Public Use
  Company Number: BR-BAYER-2017-046253

PATIENT
  Age: 31 Year
  Sex: Female

DRUGS (3)
  1. YASMIN [Suspect]
     Active Substance: DROSPIRENONE\ETHINYL ESTRADIOL
     Indication: CONTRACEPTION
     Dosage: UNK
     Dates: start: 201506, end: 201612
  2. CLEXANE [Concomitant]
     Active Substance: ENOXAPARIN SODIUM
     Indication: DEEP VEIN THROMBOSIS
     Dosage: UNK
  3. XARELTO [Suspect]
     Active Substance: RIVAROXABAN
     Indication: DEEP VEIN THROMBOSIS
     Dosage: 1 DF, QD
     Route: 048
     Dates: start: 201604

REACTIONS (11)
  - Pulmonary embolism [Recovered/Resolved with Sequelae]
  - Malaise [Recovered/Resolved]
  - Inappropriate schedule of drug administration [Recovered/Resolved]
  - Dyspnoea [Recovered/Resolved with Sequelae]
  - Deep vein thrombosis [Not Recovered/Not Resolved]
  - Abortion spontaneous [Recovered/Resolved]
  - Haemorrhagic ovarian cyst [Not Recovered/Not Resolved]
  - Myocardial ischaemia [Unknown]
  - Blood pressure fluctuation [Recovered/Resolved]
  - Drug ineffective [None]
  - Pregnancy on oral contraceptive [Recovered/Resolved]

NARRATIVE: CASE EVENT DATE: 20151211
